FAERS Safety Report 10786219 (Version 1)
Quarter: 2015Q1

REPORT INFORMATION
  Report Type: Spontaneous
  Country: US (occurrence: None)
  Receive Date: 20150210
  Receipt Date: 20150210
  Transmission Date: 20150721
  Serious: Yes (Hospitalization, Disabling)
  Sender: FDA-Public Use
  Company Number: None

PATIENT
  Age: 59 Year
  Sex: Male
  Weight: 115.67 kg

DRUGS (1)
  1. LEVOFLOXACIN. [Suspect]
     Active Substance: LEVOFLOXACIN
     Indication: DRUG THERAPY
     Dosage: 1, ONCE DAILY, TAKEN BY MOUTH
     Route: 048
     Dates: start: 20150121, end: 20150125

REACTIONS (5)
  - Cerebrovascular accident [None]
  - Confusional state [None]
  - Vision blurred [None]
  - Visual field defect [None]
  - Amnesia [None]

NARRATIVE: CASE EVENT DATE: 20150125
